FAERS Safety Report 18304389 (Version 3)
Quarter: 2022Q1

REPORT INFORMATION
  Report Type: Spontaneous
  Country: US (occurrence: None)
  Receive Date: 20200923
  Receipt Date: 20220318
  Transmission Date: 20220423
  Serious: Yes (Other)
  Sender: FDA-Public Use
  Company Number: 2020SF19542

PATIENT
  Sex: Female

DRUGS (38)
  1. NEXIUM [Suspect]
     Active Substance: ESOMEPRAZOLE MAGNESIUM
     Indication: Gastric ulcer
     Route: 048
     Dates: start: 2003, end: 2011
  2. NEXIUM [Suspect]
     Active Substance: ESOMEPRAZOLE MAGNESIUM
     Indication: Gastric ulcer
     Route: 048
     Dates: start: 2008, end: 2010
  3. NEXIUM [Suspect]
     Active Substance: ESOMEPRAZOLE MAGNESIUM
     Indication: Gastric ulcer
     Dosage: 40.0MG UNKNOWN
     Route: 048
     Dates: start: 2008, end: 201004
  4. NEXIUM [Suspect]
     Active Substance: ESOMEPRAZOLE MAGNESIUM
     Indication: Gastric ulcer
     Dosage: GENERIC UNKNOWN
     Route: 065
     Dates: start: 2010, end: 2011
  5. NEXIUM 24HR [Suspect]
     Active Substance: ESOMEPRAZOLE MAGNESIUM
     Indication: Gastric ulcer
     Route: 048
     Dates: start: 2003, end: 2011
  6. NEXIUM 24HR [Suspect]
     Active Substance: ESOMEPRAZOLE MAGNESIUM
     Indication: Gastric ulcer
     Route: 048
     Dates: start: 2010, end: 2013
  7. PRILOSEC [Suspect]
     Active Substance: OMEPRAZOLE MAGNESIUM
     Indication: Gastric ulcer
     Route: 048
     Dates: start: 2003, end: 2011
  8. PRILOSEC [Suspect]
     Active Substance: OMEPRAZOLE MAGNESIUM
     Indication: Gastric ulcer
     Route: 048
     Dates: start: 2013, end: 2015
  9. PRILOSEC [Suspect]
     Active Substance: OMEPRAZOLE MAGNESIUM
     Indication: Gastric ulcer
     Route: 048
     Dates: start: 2011, end: 2015
  10. PRILOSEC [Suspect]
     Active Substance: OMEPRAZOLE MAGNESIUM
     Indication: Gastric ulcer
     Dosage: GENERIC
     Route: 065
     Dates: start: 2008, end: 2015
  11. PRILOSEC OTC [Suspect]
     Active Substance: OMEPRAZOLE MAGNESIUM
     Indication: Gastric ulcer
     Route: 048
     Dates: start: 2015, end: 2019
  12. PREVACID [Suspect]
     Active Substance: LANSOPRAZOLE
     Indication: Ulcer
     Dosage: 30.0MG UNKNOWN
     Route: 065
     Dates: start: 200308, end: 2011
  13. PREVACID [Suspect]
     Active Substance: LANSOPRAZOLE
     Indication: Ulcer
     Dosage: UNKNOWN
     Route: 065
     Dates: start: 200308, end: 2008
  14. PROTONIX [Suspect]
     Active Substance: PANTOPRAZOLE SODIUM
     Route: 065
     Dates: start: 200502
  15. ASPIRIN [Concomitant]
     Active Substance: ASPIRIN
     Indication: Anticoagulation drug level
     Dates: start: 2011
  16. TRAMADOL [Concomitant]
     Active Substance: TRAMADOL
  17. SENSIPAR [Concomitant]
     Active Substance: CINACALCET HYDROCHLORIDE
  18. ACETAMINOPHEN\HYDROCODONE [Concomitant]
     Active Substance: ACETAMINOPHEN\HYDROCODONE
  19. CYCLOBENZAPRINE [Concomitant]
     Active Substance: CYCLOBENZAPRINE
  20. ZOSTAVAX [Concomitant]
     Active Substance: VARICELLA-ZOSTER VIRUS STRAIN OKA/MERCK LIVE ANTIGEN
  21. GABAPENTIN [Concomitant]
     Active Substance: GABAPENTIN
  22. PROMETHAZINE [Concomitant]
     Active Substance: PROMETHAZINE HYDROCHLORIDE
  23. CETIRIZINE [Concomitant]
     Active Substance: CETIRIZINE HYDROCHLORIDE
  24. MINOXIDIL [Concomitant]
     Active Substance: MINOXIDIL
  25. LEVOTHYROXINE [Concomitant]
     Active Substance: LEVOTHYROXINE
  26. GLIMEPIRIDE [Concomitant]
     Active Substance: GLIMEPIRIDE
  27. HEPARIN [Concomitant]
     Active Substance: HEPARIN SODIUM
  28. HYDROCORTISONE [Concomitant]
     Active Substance: HYDROCORTISONE
  29. CLONIDINE [Concomitant]
     Active Substance: CLONIDINE
  30. FUROSEMIDE [Concomitant]
     Active Substance: FUROSEMIDE
  31. VALSARTAN [Concomitant]
     Active Substance: VALSARTAN
  32. BENAZEPRIL [Concomitant]
     Active Substance: BENAZEPRIL HYDROCHLORIDE
  33. IMDUR [Concomitant]
     Active Substance: ISOSORBIDE MONONITRATE
  34. DIOVAN [Concomitant]
     Active Substance: VALSARTAN
  35. COREG [Concomitant]
     Active Substance: CARVEDILOL
  36. ULTRAM [Concomitant]
     Active Substance: TRAMADOL HYDROCHLORIDE
  37. CLINDAMYCIN [Concomitant]
     Active Substance: CLINDAMYCIN
  38. LIDODERM [Concomitant]
     Active Substance: LIDOCAINE

REACTIONS (6)
  - Chronic kidney disease [Not Recovered/Not Resolved]
  - End stage renal disease [Unknown]
  - Nephrogenic anaemia [Unknown]
  - Acute kidney injury [Unknown]
  - Renal failure [Unknown]
  - Hyperparathyroidism secondary [Unknown]
